FAERS Safety Report 24887999 (Version 2)
Quarter: 2025Q1

REPORT INFORMATION
  Report Type: Report from Study
  Country: US (occurrence: US)
  Receive Date: 20250127
  Receipt Date: 20250228
  Transmission Date: 20250408
  Serious: Yes (Other)
  Sender: AUROBINDO
  Company Number: US-AUROBINDO-AUR-APL-2025-003661

PATIENT
  Age: 11 Year
  Sex: Female

DRUGS (10)
  1. AZITHROMYCIN [Suspect]
     Active Substance: AZITHROMYCIN
     Indication: Mycobacterium avium complex infection
     Route: 065
  2. AZITHROMYCIN [Suspect]
     Active Substance: AZITHROMYCIN
     Indication: Lung disorder
  3. IVACAFTOR [Suspect]
     Active Substance: IVACAFTOR
     Indication: Mycobacterium avium complex infection
     Route: 065
  4. IVACAFTOR [Suspect]
     Active Substance: IVACAFTOR
     Indication: Lung disorder
  5. AMIKACIN [Suspect]
     Active Substance: AMIKACIN
     Indication: Mycobacterium avium complex infection
     Route: 065
  6. AMIKACIN [Suspect]
     Active Substance: AMIKACIN
     Indication: Lung disorder
  7. ETHAMBUTOL [Suspect]
     Active Substance: ETHAMBUTOL HYDROCHLORIDE
     Indication: Mycobacterium avium complex infection
     Route: 065
  8. ETHAMBUTOL [Suspect]
     Active Substance: ETHAMBUTOL HYDROCHLORIDE
     Indication: Lung disorder
  9. RIFABUTIN [Suspect]
     Active Substance: RIFABUTIN
     Indication: Mycobacterium avium complex infection
     Route: 065
  10. RIFABUTIN [Suspect]
     Active Substance: RIFABUTIN
     Indication: Lung disorder

REACTIONS (1)
  - Drug ineffective [Unknown]
